FAERS Safety Report 5204917-X (Version None)
Quarter: 2007Q1

REPORT INFORMATION
  Report Type: 
  Country: None (occurrence: None)
  Receive Date: 20070110
  Receipt Date: 20060901
  Transmission Date: 20070707
  Serious: No
  Sender: FDA-Public Use
  Company Number: US-BRISTOL-MYERS SQUIBB COMPANY-13495494

PATIENT
  Age: 6 Year
  Sex: Male
  Weight: 23 kg

DRUGS (4)
  1. ABILIFY [Suspect]
     Indication: MOOD SWINGS
     Route: 048
     Dates: start: 20050301
  2. CONCERTA [Concomitant]
  3. STRATTERA [Concomitant]
  4. PERIACTIN [Concomitant]

REACTIONS (5)
  - DRUG INEFFECTIVE [None]
  - INCONTINENCE [None]
  - LETHARGY [None]
  - MUSCULOSKELETAL STIFFNESS [None]
  - POLYURIA [None]
